FAERS Safety Report 8517558-3 (Version None)
Quarter: 2012Q3

REPORT INFORMATION
  Report Type: 
  Country: None (occurrence: None)
  Receive Date: 20120718
  Receipt Date: 20120709
  Transmission Date: 20120928
  Serious: Yes (Hospitalization)
  Sender: FDA-Public Use
  Company Number: AU-ASTRAZENECA-2011SE52171

PATIENT
  Age: 40 Year
  Sex: Female

DRUGS (7)
  1. CITALOPRAM HYDROBROMIDE [Concomitant]
     Indication: DEPRESSION
  2. FISH OIL [Concomitant]
     Indication: MINERAL SUPPLEMENTATION
  3. SEROQUEL XR [Suspect]
     Indication: PSYCHOTIC DISORDER
     Dosage: 25-450 MG/DAY INITIATED AT 26/40 WEEKS OF PREGNANCY AND IS ONGOING WITH 25 MG
     Route: 048
  4. FERROGRAD C [Concomitant]
     Indication: VITAMIN SUPPLEMENTATION
  5. BLACKMORES P+BF [Concomitant]
     Indication: VITAMIN SUPPLEMENTATION
  6. FERROGRAD C [Concomitant]
     Indication: MINERAL SUPPLEMENTATION
  7. VITAMIN B COMPLEX CAP [Concomitant]
     Indication: VITAMIN SUPPLEMENTATION

REACTIONS (2)
  - MATERNAL EXPOSURE DURING PREGNANCY [None]
  - ANXIETY [None]
